FAERS Safety Report 17519344 (Version 1)
Quarter: 2020Q1

REPORT INFORMATION
  Report Type: Spontaneous
  Country: US (occurrence: US)
  Receive Date: 20200310
  Receipt Date: 20200310
  Transmission Date: 20200409
  Serious: No
  Sender: FDA-Public Use
  Company Number: US-ALLERGAN-1922424US

PATIENT
  Age: 61 Year
  Sex: Female
  Weight: 122 kg

DRUGS (4)
  1. ESTRACE [Suspect]
     Active Substance: ESTRADIOL
     Dosage: 4 G
     Route: 067
     Dates: start: 20190524
  2. ESTRACE [Suspect]
     Active Substance: ESTRADIOL
     Indication: ATROPHIC VULVOVAGINITIS
     Dosage: 2 G
     Route: 067
     Dates: end: 20190526
  3. ESTRACE [Suspect]
     Active Substance: ESTRADIOL
     Dosage: 3 G, QD
     Route: 067
  4. THYROID COMPOUNDED PORCINE GLAND [Concomitant]
     Indication: HYPOTHYROIDISM
     Dosage: 24 MG, QD
     Route: 065

REACTIONS (9)
  - Swelling [Recovered/Resolved]
  - Vulvovaginal discomfort [Recovered/Resolved]
  - Abdominal pain lower [Recovered/Resolved]
  - Vulvovaginal burning sensation [Recovered/Resolved]
  - Vulvovaginal inflammation [Recovered/Resolved]
  - Product prescribing error [Unknown]
  - Product dose omission [Unknown]
  - Vulvovaginal pain [Recovered/Resolved]
  - Vulvovaginal pruritus [Recovered/Resolved]

NARRATIVE: CASE EVENT DATE: 20190526
